FAERS Safety Report 18689558 (Version 3)
Quarter: 2021Q1

REPORT INFORMATION
  Report Type: Spontaneous
  Country: US (occurrence: US)
  Receive Date: 20201231
  Receipt Date: 20210311
  Transmission Date: 20210419
  Serious: Yes (Other)
  Sender: FDA-Public Use
  Company Number: US-ASTRAZENECA-2020SF62545

PATIENT
  Sex: Female

DRUGS (13)
  1. SYMBICORT [Suspect]
     Active Substance: BUDESONIDE\FORMOTEROL FUMARATE DIHYDRATE
     Indication: CHILDHOOD ASTHMA
     Dosage: 80/45 MCG, TWICE A DAY
     Route: 055
  2. SYMBICORT [Suspect]
     Active Substance: BUDESONIDE\FORMOTEROL FUMARATE DIHYDRATE
     Indication: PRODUCT USED FOR UNKNOWN INDICATION
     Dosage: 80/45 MCG, TWICE A DAY
     Route: 055
  3. QVAR [Concomitant]
     Active Substance: BECLOMETHASONE DIPROPIONATE
     Indication: ILL-DEFINED DISORDER
     Dosage: UNKNOWN
  4. PROAIR HFA [Concomitant]
     Active Substance: ALBUTEROL SULFATE
     Dosage: UNKNOWN
  5. PREDNISONE. [Concomitant]
     Active Substance: PREDNISONE
     Indication: ADJUVANT THERAPY
     Dosage: UNKNOWN
     Route: 065
  6. SYMBICORT [Suspect]
     Active Substance: BUDESONIDE\FORMOTEROL FUMARATE DIHYDRATE
     Indication: PRODUCT USED FOR UNKNOWN INDICATION
     Dosage: 160/4.5 MCG, TWO TIMES A DAY
     Route: 055
  7. SPIRIVA [Concomitant]
     Active Substance: TIOTROPIUM BROMIDE MONOHYDRATE
     Indication: ILL-DEFINED DISORDER
     Dosage: UNKNOWN
  8. ALBUTEROL SULFATE. [Concomitant]
     Active Substance: ALBUTEROL SULFATE
  9. SYMBICORT [Suspect]
     Active Substance: BUDESONIDE\FORMOTEROL FUMARATE DIHYDRATE
     Indication: CHILDHOOD ASTHMA
     Dosage: 160/4.5 MCG, TWO TIMES A DAY
     Route: 055
  10. VENTALIN HFA [Concomitant]
     Indication: INHALATION THERAPY
     Dosage: AS REQUIRED
     Route: 055
  11. FASENRA [Suspect]
     Active Substance: BENRALIZUMAB
     Route: 058
     Dates: start: 202009
  12. PULMICORT TURBUHALER [Suspect]
     Active Substance: BUDESONIDE
     Indication: ASTHMA
     Route: 055
  13. CORTISONE [Concomitant]
     Active Substance: CORTISONE

REACTIONS (37)
  - Pulmonary arterial hypertension [Unknown]
  - Nervous system disorder [Unknown]
  - Drug resistance [Unknown]
  - Nephrolithiasis [Unknown]
  - Bronchitis [Unknown]
  - Wheezing [Unknown]
  - Cardiac disorder [Unknown]
  - Angina pectoris [Unknown]
  - Oropharyngeal discomfort [Unknown]
  - Nerve block [Unknown]
  - Skin atrophy [Unknown]
  - Dyspnoea [Unknown]
  - Immune system disorder [Unknown]
  - Oral disorder [Unknown]
  - Renal pain [Unknown]
  - Urinary tract infection [Unknown]
  - Pulmonary fibrosis [Unknown]
  - Sleep apnoea syndrome [Unknown]
  - Pneumonia [Unknown]
  - Product use issue [Unknown]
  - Dysphonia [Unknown]
  - Dry skin [Unknown]
  - General physical health deterioration [Unknown]
  - Drug dependence [Unknown]
  - Eosinophil count increased [Unknown]
  - Haematuria [Unknown]
  - Vomiting [Unknown]
  - Product dose omission issue [Unknown]
  - Impaired healing [Unknown]
  - Secretion discharge [Unknown]
  - Eosinophil count abnormal [Unknown]
  - Disease risk factor [Unknown]
  - Drug ineffective [Unknown]
  - Obstructive airways disorder [Unknown]
  - Rales [Unknown]
  - Cough [Unknown]
  - Tachycardia [Unknown]

NARRATIVE: CASE EVENT DATE: 20200915
